FAERS Safety Report 5679976-0 (Version None)
Quarter: 2008Q1

REPORT INFORMATION
  Report Type: 
  Country: None (occurrence: None)
  Receive Date: 20080325
  Receipt Date: 20080325
  Transmission Date: 20080703
  Serious: No
  Sender: FDA-Public Use
  Company Number: None

PATIENT
  Sex: Female
  Weight: 52.3 kg

DRUGS (1)
  1. TEMOZOLOMIDE [Suspect]
     Dosage: 12850 MG

REACTIONS (11)
  - AMENORRHOEA [None]
  - ANOREXIA [None]
  - ARTHRALGIA [None]
  - DRUG TOXICITY [None]
  - HOT FLUSH [None]
  - HYPERACUSIS [None]
  - MYALGIA [None]
  - NEUTROPHIL COUNT DECREASED [None]
  - NIGHT SWEATS [None]
  - PAIN IN EXTREMITY [None]
  - WHITE BLOOD CELL COUNT DECREASED [None]
